FAERS Safety Report 7633421-4 (Version None)
Quarter: 2011Q3

REPORT INFORMATION
  Report Type: 
  Country: None (occurrence: None)
  Receive Date: 20110725
  Receipt Date: 20110712
  Transmission Date: 20111222
  Serious: Yes (Hospitalization, Disabling, Congenital Anomaly, Other)
  Sender: FDA-Public Use
  Company Number: US-PFIZER INC-2010092568

PATIENT
  Sex: Male
  Weight: 4 kg

DRUGS (6)
  1. PROMETHAZINE [Concomitant]
     Indication: NAUSEA
     Dosage: 25 MG, EVERY 6 HOURS.
     Dates: start: 20001115
  2. PROMETHAZINE [Concomitant]
     Indication: VOMITING
  3. ZOLOFT [Suspect]
     Indication: DEPRESSION
     Dosage: UNK
     Route: 064
  4. EFFEXOR [Suspect]
     Dosage: UNK
     Route: 064
  5. ZOFRAN [Concomitant]
     Indication: NAUSEA
     Dosage: 8 MG, 2X/DAY
     Dates: start: 20010103
  6. PENICILLIN [Concomitant]
     Dosage: UNK
     Route: 030
     Dates: start: 20010213

REACTIONS (34)
  - CARDIOMEGALY [None]
  - RESPIRATORY DISTRESS [None]
  - DEVELOPMENTAL DELAY [None]
  - GASTROOESOPHAGEAL REFLUX DISEASE [None]
  - TOXICITY TO VARIOUS AGENTS [None]
  - FALLOT'S TETRALOGY [None]
  - TRANSIENT TACHYPNOEA OF THE NEWBORN [None]
  - OTITIS MEDIA [None]
  - URINARY TRACT MALFORMATION [None]
  - HYPERTENSION [None]
  - MATERNAL EXPOSURE DURING PREGNANCY [None]
  - FOOT DEFORMITY [None]
  - RENAL TUBULAR NECROSIS [None]
  - STRABISMUS [None]
  - CONGENITAL ANAEMIA [None]
  - MITRAL VALVE INCOMPETENCE [None]
  - ELECTROLYTE IMBALANCE [None]
  - RENAL OSTEODYSTROPHY [None]
  - GLYCOSURIA [None]
  - HYPOTHYROIDISM [None]
  - PULMONARY VALVE STENOSIS CONGENITAL [None]
  - CYTOGENETIC ABNORMALITY [None]
  - RENAL FAILURE CHRONIC [None]
  - JAUNDICE NEONATAL [None]
  - SEPSIS [None]
  - PYELONEPHRITIS [None]
  - ASTHMA [None]
  - GLUCOSE TOLERANCE IMPAIRED [None]
  - SINGLE FUNCTIONAL KIDNEY [None]
  - TRICUSPID VALVE INCOMPETENCE [None]
  - GINGIVITIS [None]
  - ATRIAL SEPTAL DEFECT [None]
  - HYPOGLYCAEMIA [None]
  - HYPERINSULINAEMIA [None]
